FAERS Safety Report 25044915 (Version 1)
Quarter: 2025Q1

REPORT INFORMATION
  Report Type: Spontaneous
  Country: JP (occurrence: JP)
  Receive Date: 20250306
  Receipt Date: 20250306
  Transmission Date: 20250409
  Serious: Yes (Other)
  Sender: MERCK SHARP & DOHME LLC
  Company Number: JP-009507513-2260765

PATIENT
  Age: 75 Year
  Sex: Male

DRUGS (2)
  1. PEMBROLIZUMAB [Suspect]
     Active Substance: PEMBROLIZUMAB
     Indication: Gastric cancer
  2. OXALIPLATIN [Suspect]
     Active Substance: OXALIPLATIN
     Indication: Gastric cancer

REACTIONS (9)
  - Neuropathy peripheral [Unknown]
  - Neutrophil count decreased [Unknown]
  - Malaise [Unknown]
  - Stomatitis [Unknown]
  - Anaemia [Unknown]
  - Platelet count decreased [Unknown]
  - Therapy partial responder [Unknown]
  - Blood albumin decreased [Unknown]
  - Taste disorder [Unknown]
